FAERS Safety Report 5954773-7 (Version None)
Quarter: 2008Q4

REPORT INFORMATION
  Report Type: 
  Country: None (occurrence: None)
  Receive Date: 20081112
  Receipt Date: 20081107
  Transmission Date: 20090506
  Serious: Yes (Hospitalization)
  Sender: FDA-Public Use
  Company Number: SP01983

PATIENT
  Age: 57 Year
  Sex: Female

DRUGS (10)
  1. VISICOL [Suspect]
     Indication: COLONOSCOPY
     Dosage: 50 GM,ORAL
     Route: 048
     Dates: start: 20080620, end: 20080620
  2. COLCHICINE [Concomitant]
  3. SULFASALAZINE [Concomitant]
  4. CYCLOSPORINE [Concomitant]
  5. RANITIDINE [Concomitant]
  6. IRSOGLADINE MALEATE [Concomitant]
  7. DAI-KENCHU-TO [Concomitant]
  8. LACTOMIN [Concomitant]
  9. ALENDRONATE SODIUM [Concomitant]
  10. FEXOFENADINE [Concomitant]

REACTIONS (7)
  - CYANOSIS [None]
  - FEELING COLD [None]
  - MALAISE [None]
  - PYREXIA [None]
  - RENAL FAILURE ACUTE [None]
  - RENAL TUBULAR NECROSIS [None]
  - WHITE BLOOD CELL COUNT INCREASED [None]
